FAERS Safety Report 20691360 (Version 1)
Quarter: 2022Q2

REPORT INFORMATION
  Report Type: Spontaneous
  Country: RU (occurrence: None)
  Receive Date: 20220408
  Receipt Date: 20220408
  Transmission Date: 20220720
  Serious: Yes (Other)
  Sender: FDA-Public Use
  Company Number: 2022A139113

PATIENT
  Age: 60 Year
  Sex: Female

DRUGS (6)
  1. BRILINTA [Suspect]
     Active Substance: TICAGRELOR
     Indication: Acute myocardial infarction
     Route: 048
     Dates: start: 202202
  2. BRILINTA [Suspect]
     Active Substance: TICAGRELOR
     Indication: Percutaneous coronary intervention
     Route: 048
     Dates: start: 202202
  3. BRILINTA [Suspect]
     Active Substance: TICAGRELOR
     Indication: Acute myocardial infarction
     Route: 048
  4. BRILINTA [Suspect]
     Active Substance: TICAGRELOR
     Indication: Percutaneous coronary intervention
     Route: 048
  5. ATORVASTATIN [Concomitant]
     Active Substance: ATORVASTATIN
  6. ASPIRIN [Concomitant]
     Active Substance: ASPIRIN

REACTIONS (6)
  - Anaemia [Unknown]
  - Platelet count decreased [Unknown]
  - COVID-19 [Recovered/Resolved]
  - Blood urea increased [Unknown]
  - Blood creatine increased [Unknown]
  - Off label use [Unknown]
